FAERS Safety Report 10050578 (Version 1)
Quarter: 2014Q2

REPORT INFORMATION
  Report Type: Spontaneous
  Country: US (occurrence: US)
  Receive Date: 20140401
  Receipt Date: 20140401
  Transmission Date: 20141212
  Serious: No
  Sender: FDA-Public Use
  Company Number: US-ASTRAZENECA-2013SE83931

PATIENT
  Age: 63 Year
  Sex: Female
  Weight: 59 kg

DRUGS (3)
  1. NEXIUM [Suspect]
     Indication: GASTROOESOPHAGEAL REFLUX DISEASE
     Route: 048
     Dates: start: 2007
  2. SYNTHROID [Concomitant]
     Indication: AUTOIMMUNE THYROIDITIS
     Route: 048
     Dates: start: 201311
  3. CREON 12000 [Concomitant]
     Indication: PANCREATIC NEOPLASM
     Dosage: 2-3 DAILY
     Route: 048

REACTIONS (1)
  - Autoimmune thyroiditis [Unknown]
